FAERS Safety Report 17010218 (Version 1)
Quarter: 2019Q4

REPORT INFORMATION
  Report Type: Spontaneous
  Country: US (occurrence: US)
  Receive Date: 20191108
  Receipt Date: 20191108
  Transmission Date: 20200122
  Serious: Yes (Death, Hospitalization, Other)
  Sender: FDA-Public Use
  Company Number: US-BIOGEN-2013BI047174

PATIENT
  Age: 48 Year
  Sex: Male

DRUGS (3)
  1. TYSABRI [Suspect]
     Active Substance: NATALIZUMAB
     Indication: MULTIPLE SCLEROSIS
     Route: 042
     Dates: start: 20081002, end: 20130304
  2. PERCOCET [Concomitant]
     Active Substance: ACETAMINOPHEN\OXYCODONE HYDROCHLORIDE
     Indication: PRODUCT USED FOR UNKNOWN INDICATION
     Route: 065
     Dates: start: 20100209
  3. RITALIN [Concomitant]
     Active Substance: METHYLPHENIDATE HYDROCHLORIDE
     Indication: PRODUCT USED FOR UNKNOWN INDICATION
     Route: 048
     Dates: start: 20080325

REACTIONS (16)
  - Hypoglycaemic encephalopathy [Fatal]
  - Hypoglycaemia [Not Recovered/Not Resolved]
  - Diabetes mellitus [Unknown]
  - Pleural effusion [Unknown]
  - Gastrointestinal haemorrhage [Unknown]
  - Nausea [Not Recovered/Not Resolved]
  - Atelectasis [Unknown]
  - Septic shock [Unknown]
  - Diabetic ketoacidosis [Not Recovered/Not Resolved]
  - Loss of personal independence in daily activities [Unknown]
  - Vomiting [Unknown]
  - Lung consolidation [Unknown]
  - Multiple sclerosis [Not Recovered/Not Resolved]
  - Depression [Unknown]
  - Seizure [Unknown]
  - Brain injury [Fatal]

NARRATIVE: CASE EVENT DATE: 20130315
